FAERS Safety Report 12704000 (Version 2)
Quarter: 2016Q3

REPORT INFORMATION
  Report Type: Spontaneous
  Country: CH (occurrence: ZA)
  Receive Date: 20160831
  Receipt Date: 20160916
  Transmission Date: 20161109
  Serious: Yes (Disabling)
  Sender: FDA-Public Use
  Company Number: CH-LPDUSPRD-20160769

PATIENT
  Age: 37 Year
  Sex: Female
  Weight: 50 kg

DRUGS (1)
  1. FERINJECT [Suspect]
     Active Substance: FERRIC CARBOXYMALTOSE
     Dosage: 1000 MG
     Route: 041
     Dates: start: 20160527, end: 20160527

REACTIONS (5)
  - Asthenia [Recovered/Resolved with Sequelae]
  - Chest discomfort [Recovered/Resolved with Sequelae]
  - Infusion site pain [Recovered/Resolved with Sequelae]
  - Stenosis [Recovered/Resolved with Sequelae]
  - Blood pressure decreased [Unknown]

NARRATIVE: CASE EVENT DATE: 20160527
